FAERS Safety Report 6829476-7 (Version None)
Quarter: 2010Q3

REPORT INFORMATION
  Report Type: 
  Country: None (occurrence: None)
  Receive Date: 20100709
  Receipt Date: 20070311
  Transmission Date: 20110219
  Serious: No
  Sender: FDA-Public Use
  Company Number: US-PFIZER INC-2007014941

PATIENT
  Sex: Female

DRUGS (2)
  1. VARENICLINE [Suspect]
     Indication: SMOKING CESSATION THERAPY
     Dates: start: 20070101, end: 20070301
  2. KLONOPIN [Concomitant]
     Indication: PREMENSTRUAL SYNDROME

REACTIONS (3)
  - DIZZINESS [None]
  - MEDICATION ERROR [None]
  - SOMNOLENCE [None]
